FAERS Safety Report 6938336-2 (Version None)
Quarter: 2010Q3

REPORT INFORMATION
  Report Type: 
  Country: None (occurrence: None)
  Receive Date: 20100824
  Receipt Date: 20100811
  Transmission Date: 20110219
  Serious: Yes (Other)
  Sender: FDA-Public Use
  Company Number: US-PFIZER INC-2010101617

PATIENT
  Sex: Female
  Weight: 54.422 kg

DRUGS (4)
  1. LYRICA [Suspect]
     Indication: FIBROMYALGIA
     Dosage: UNK
     Dates: start: 20030101
  2. LYRICA [Suspect]
     Indication: NEUROPATHY PERIPHERAL
  3. TRAMADOL [Concomitant]
     Dosage: UNK
  4. OXYCODONE [Concomitant]
     Dosage: UNK

REACTIONS (14)
  - DEHYDRATION [None]
  - DRUG EFFECT DECREASED [None]
  - DYSKINESIA OESOPHAGEAL [None]
  - DYSPNOEA [None]
  - INCREASED UPPER AIRWAY SECRETION [None]
  - INSOMNIA [None]
  - MUSCULOSKELETAL STIFFNESS [None]
  - NEUROPATHY PERIPHERAL [None]
  - OEDEMA PERIPHERAL [None]
  - SINUS HEADACHE [None]
  - UPPER-AIRWAY COUGH SYNDROME [None]
  - VISION BLURRED [None]
  - WEIGHT INCREASED [None]
  - WITHDRAWAL SYNDROME [None]
